FAERS Safety Report 13010658 (Version 2)
Quarter: 2017Q1

REPORT INFORMATION
  Report Type: Spontaneous
  Country: FR (occurrence: FR)
  Receive Date: 20161208
  Receipt Date: 20170103
  Transmission Date: 20170428
  Serious: Yes (Death, Hospitalization, Other)
  Sender: FDA-Public Use
  Company Number: FR-ELI_LILLY_AND_COMPANY-FR201612000195

PATIENT
  Age: 82 Year
  Sex: Male

DRUGS (13)
  1. LEVEMIR [Suspect]
     Active Substance: INSULIN DETEMIR
     Indication: DIABETES MELLITUS
     Dosage: 100 IU, QD
     Route: 058
     Dates: start: 20160507, end: 20160614
  2. HUMALOG [Suspect]
     Active Substance: INSULIN LISPRO
     Indication: DIABETES MELLITUS
     Dosage: 100 IU, QD
     Route: 058
     Dates: start: 20160520, end: 20160613
  3. ACTONEL [Concomitant]
     Active Substance: RISEDRONATE SODIUM
     Dosage: 35 MG, UNKNOWN
     Route: 065
  4. ASPIRIN PROTECT [Suspect]
     Active Substance: ASPIRIN
     Indication: MYOCARDIAL ISCHAEMIA
     Dosage: 100 MG, QD
     Route: 048
     Dates: start: 20160524, end: 20160607
  5. CORDARONE [Concomitant]
     Active Substance: AMIODARONE HYDROCHLORIDE
     Dosage: 200 MG, UNKNOWN
     Route: 065
  6. ALDACTONE [Concomitant]
     Active Substance: SPIRONOLACTONE
     Dosage: 50 MG, UNKNOWN
     Route: 065
  7. NORFLOXACINE ARROW [Suspect]
     Active Substance: NORFLOXACIN
     Indication: INFECTION PROPHYLAXIS
     Dosage: 400 MG, QD
     Route: 048
     Dates: start: 20160524, end: 20160610
  8. CORTANCYL [Concomitant]
     Active Substance: PREDNISONE
     Dosage: 20 MG, UNKNOWN
     Route: 065
  9. PANTOPRAZOLE [Concomitant]
     Active Substance: PANTOPRAZOLE SODIUM
     Dosage: UNK, UNKNOWN
     Route: 065
  10. LASILIX FAIBLE [Concomitant]
     Active Substance: FUROSEMIDE
     Dosage: UNK, UNKNOWN
     Route: 065
  11. NOVONORM [Concomitant]
     Active Substance: REPAGLINIDE
     Dosage: 1 MG, UNKNOWN
     Route: 065
  12. ZAMUDOL [Concomitant]
     Active Substance: TRAMADOL HYDROCHLORIDE
     Dosage: 150 MG, UNKNOWN
     Route: 065
  13. UVEDOSE [Concomitant]
     Active Substance: CHOLECALCIFEROL
     Dosage: 100000 IU, UNKNOWN
     Route: 065

REACTIONS (11)
  - Cardio-respiratory arrest [Fatal]
  - Haemodynamic instability [Unknown]
  - Lung disorder [Fatal]
  - Hypoxia [Unknown]
  - Leukopenia [Fatal]
  - Neutropenia [Fatal]
  - Septic shock [Unknown]
  - Cardiogenic shock [Unknown]
  - Hepatic encephalopathy [Fatal]
  - Pneumonia streptococcal [Unknown]
  - Respiratory distress [Unknown]

NARRATIVE: CASE EVENT DATE: 20160607
